FAERS Safety Report 17536980 (Version 1)
Quarter: 2020Q1

REPORT INFORMATION
  Report Type: Spontaneous
  Country: FR (occurrence: FR)
  Receive Date: 20200313
  Receipt Date: 20200313
  Transmission Date: 20200409
  Serious: Yes (Hospitalization)
  Sender: FDA-Public Use
  Company Number: FR-AXELLIA-003038

PATIENT
  Age: 62 Year
  Sex: Male
  Weight: 67 kg

DRUGS (19)
  1. ZYVOXID [Suspect]
     Active Substance: LINEZOLID
     Indication: SEPSIS
     Route: 042
     Dates: start: 20200129, end: 20200131
  2. XANAX [Concomitant]
     Active Substance: ALPRAZOLAM
  3. ZARZIO [Suspect]
     Active Substance: FILGRASTIM
     Indication: APLASIA
     Dosage: NOT KNOWN
     Route: 042
     Dates: start: 20200127, end: 20200127
  4. TAHOR [Concomitant]
     Active Substance: ATORVASTATIN CALCIUM
  5. DEROXAT [Concomitant]
     Active Substance: PAROXETINE HYDROCHLORIDE
  6. TAZOCILLINE [Suspect]
     Active Substance: PIPERACILLIN SODIUM\TAZOBACTAM SODIUM
     Indication: SEPSIS
     Route: 042
     Dates: start: 20200123, end: 20200205
  7. LERCAN [Concomitant]
     Active Substance: LERCANIDIPINE
  8. OGASTORO [Concomitant]
     Active Substance: LANSOPRAZOLE
  9. KARDEGIC [Concomitant]
     Active Substance: ASPIRIN DL-LYSINE
  10. TRAMADOL. [Concomitant]
     Active Substance: TRAMADOL
  11. DIFFU K [Concomitant]
     Active Substance: POTASSIUM CHLORIDE
  12. KEPPRA [Concomitant]
     Active Substance: LEVETIRACETAM
  13. ELIQUIS [Concomitant]
     Active Substance: APIXABAN
  14. AUGMENTIN [Suspect]
     Active Substance: AMOXICILLIN\CLAVULANATE POTASSIUM
     Indication: SEPSIS
     Dosage: NOT SPECIFIED
     Route: 042
     Dates: start: 20200128, end: 20200131
  15. DAFALGAN [Concomitant]
     Active Substance: ACETAMINOPHEN
  16. LAROXYL [Concomitant]
     Active Substance: AMITRIPTYLINE HYDROCHLORIDE
  17. VANCOMYCIN [Suspect]
     Active Substance: VANCOMYCIN
     Indication: SEPSIS
     Dosage: NOT KNOWN
     Route: 042
     Dates: start: 20200125, end: 20200128
  18. DUPHALAC [Concomitant]
     Active Substance: LACTULOSE
  19. DUROGESIC [Concomitant]
     Active Substance: FENTANYL

REACTIONS (1)
  - Epilepsy [Recovered/Resolved]

NARRATIVE: CASE EVENT DATE: 20200130
